FAERS Safety Report 17558092 (Version 1)
Quarter: 2020Q1

REPORT INFORMATION
  Report Type: Spontaneous
  Country: US (occurrence: US)
  Receive Date: 20200318
  Receipt Date: 20200318
  Transmission Date: 20200409
  Serious: Yes (Other)
  Sender: FDA-Public Use
  Company Number: US-BAYER-2019-223755

PATIENT
  Age: 15 Year

DRUGS (4)
  1. KOVALTRY [Suspect]
     Active Substance: ANTIHEMOPHILIC FACTOR, HUMAN RECOMBINANT
     Indication: HAEMARTHROSIS
     Dosage: 2000 U
     Route: 042
  2. KOVALTRY [Suspect]
     Active Substance: ANTIHEMOPHILIC FACTOR, HUMAN RECOMBINANT
     Indication: HAEMORRHAGE
     Dosage: 2000 U - FOR LEFT HIP BLEED
     Route: 042
     Dates: start: 201912, end: 201912
  3. KOVALTRY [Suspect]
     Active Substance: ANTIHEMOPHILIC FACTOR, HUMAN RECOMBINANT
     Indication: HAEMARTHROSIS
     Dosage: 2000 U, ONCE - FOR LEFT FINGER BLEED
     Route: 042
     Dates: start: 20200125, end: 20200125
  4. KOVALTRY [Suspect]
     Active Substance: ANTIHEMOPHILIC FACTOR, HUMAN RECOMBINANT
     Indication: HAEMARTHROSIS
     Dosage: 2000 U, ONCE - FOR RIGHT WRIST BLEED
     Route: 042
     Dates: start: 20200222, end: 20200222

REACTIONS (4)
  - Haemarthrosis [None]
  - Haemarthrosis [Recovered/Resolved]
  - Haemorrhage [None]
  - Adverse event [Recovered/Resolved]

NARRATIVE: CASE EVENT DATE: 20190925
